FAERS Safety Report 13838675 (Version 2)
Quarter: 2017Q3

REPORT INFORMATION
  Report Type: Report from Study
  Country: US (occurrence: US)
  Receive Date: 20170807
  Receipt Date: 20170905
  Transmission Date: 20171127
  Serious: Yes (Other)
  Sender: FDA-Public Use
  Company Number: PHEH2017US024173

PATIENT
  Age: 51 Year
  Sex: Male
  Weight: 76.2 kg

DRUGS (1)
  1. TYKERB [Suspect]
     Active Substance: LAPATINIB DITOSYLATE
     Indication: GLIOBLASTOMA MULTIFORME
     Dosage: 1000 MG, BID
     Route: 048
     Dates: start: 20170814

REACTIONS (3)
  - Brain neoplasm malignant [Unknown]
  - Gastrointestinal toxicity [Unknown]
  - Product use in unapproved indication [Unknown]

NARRATIVE: CASE EVENT DATE: 20170814
